FAERS Safety Report 6412446-0 (Version None)
Quarter: 2009Q4

REPORT INFORMATION
  Report Type: 
  Country: None (occurrence: None)
  Receive Date: 20091023
  Receipt Date: 20091021
  Transmission Date: 20100525
  Serious: Yes (Hospitalization, Other)
  Sender: FDA-Public Use
  Company Number: FR-MERCK-0910FRA00074

PATIENT
  Age: 56 Year
  Sex: Male

DRUGS (19)
  1. ISENTRESS [Suspect]
     Indication: HIV INFECTION
     Route: 048
     Dates: start: 20090604
  2. EMTRICITABINE AND TENOFOVIR DISOPROXIL FUMARATE [Suspect]
     Indication: HIV INFECTION
     Route: 048
     Dates: start: 20090604
  3. METRONIDAZOLE [Suspect]
     Route: 048
     Dates: start: 20090529, end: 20090608
  4. CEFOTAXIME SODIUM [Suspect]
     Route: 048
     Dates: start: 20090529, end: 20090608
  5. VANCOMYCIN [Suspect]
     Route: 042
     Dates: start: 20090616, end: 20090702
  6. ESOMEPRAZOLE MAGNESIUM [Suspect]
     Route: 048
  7. VERAPAMIL HYDROCHLORIDE [Suspect]
     Route: 048
  8. CYAMEMAZINE [Suspect]
     Route: 048
     Dates: end: 20090616
  9. PREGABALIN [Suspect]
     Route: 048
     Dates: end: 20090616
  10. OLANZAPINE [Suspect]
     Route: 048
  11. CLONAZEPAM [Suspect]
     Route: 048
  12. NICOTINE [Suspect]
     Route: 061
  13. MAGNESIUM PIDOLATE [Suspect]
     Route: 048
  14. LEUCOVORIN CALCIUM [Suspect]
     Route: 048
  15. ZOPICLONE [Suspect]
     Route: 048
  16. FLUTICASONE PROPIONATE AND SALMETEROL XINAFOATE [Suspect]
  17. ACETAMINOPHEN [Suspect]
     Route: 048
  18. PYRIDOXINE AND THIAMINE [Suspect]
     Route: 048
  19. LAMIVUDINE AND ZIDOVUDINE [Concomitant]
     Route: 065
     Dates: end: 20090603

REACTIONS (1)
  - THROMBOCYTOPENIA [None]
